FAERS Safety Report 14581871 (Version 1)
Quarter: 2018Q1

REPORT INFORMATION
  Report Type: Spontaneous
  Country: GB (occurrence: GB)
  Receive Date: 20180228
  Receipt Date: 20180228
  Transmission Date: 20180509
  Serious: Yes (Hospitalization)
  Sender: FDA-Public Use
  Company Number: GB-TEVA-2018-GB-862056

PATIENT
  Age: 58 Year
  Sex: Male
  Weight: 86.4 kg

DRUGS (3)
  1. EXVIERA [Suspect]
     Active Substance: DASABUVIR
     Indication: CHRONIC HEPATITIS C
     Dosage: 550 MILLIGRAM DAILY;
     Route: 048
     Dates: start: 20171005
  2. RIBAVIRIN. [Suspect]
     Active Substance: RIBAVIRIN
     Indication: CHRONIC HEPATITIS C
     Dosage: 800-1000MG DAILY
     Route: 048
     Dates: start: 20171005
  3. VIEKIRAX [Suspect]
     Active Substance: OMBITASVIR\PARITAPREVIR\RITONAVIR
     Indication: CHRONIC HEPATITIS C
     Dosage: 12.5/50/75 MG TWICE DAILY
     Route: 048
     Dates: start: 20171005

REACTIONS (1)
  - Diverticular perforation [Recovering/Resolving]

NARRATIVE: CASE EVENT DATE: 20171114
